FAERS Safety Report 7273594-9 (Version None)
Quarter: 2011Q1

REPORT INFORMATION
  Report Type: 
  Country: None (occurrence: None)
  Receive Date: 20110203
  Receipt Date: 20101108
  Transmission Date: 20110831
  Serious: No
  Sender: FDA-Public Use
  Company Number: PR-ABBOTT-10P-131-0684055-00

PATIENT
  Sex: Female
  Weight: 60.382 kg

DRUGS (2)
  1. SYNTHROID [Suspect]
     Indication: THYROID NEOPLASM
     Route: 048
  2. PREMARIN [Concomitant]
     Indication: PRODUCT USED FOR UNKNOWN INDICATION
     Route: 048

REACTIONS (6)
  - OVERDOSE [None]
  - FATIGUE [None]
  - DRUG DISPENSING ERROR [None]
  - TREMOR [None]
  - INSOMNIA [None]
  - RASH [None]
